FAERS Safety Report 18581346 (Version 1)
Quarter: 2020Q4

REPORT INFORMATION
  Report Type: Spontaneous
  Country: US (occurrence: US)
  Receive Date: 20201204
  Receipt Date: 20201204
  Transmission Date: 20210114
  Serious: Yes (Death, Other)
  Sender: FDA-Public Use
  Company Number: NVSC2020US323126

PATIENT
  Age: 35 Year
  Sex: Male

DRUGS (2)
  1. ADAKVEO [Suspect]
     Active Substance: CRIZANLIZUMAB-TMCA
     Indication: SICKLE CELL ANAEMIA WITH CRISIS
     Dosage: 5 MG, QMO (SOLUTION)
     Route: 042
     Dates: start: 20200228, end: 20201029
  2. JADENU [Suspect]
     Active Substance: DEFERASIROX
     Indication: SICKLE CELL ANAEMIA WITH CRISIS
     Route: 065

REACTIONS (9)
  - Pulmonary arterial hypertension [Fatal]
  - Chronic kidney disease [Unknown]
  - Iron overload [Fatal]
  - Hyperthyroidism [Fatal]
  - Oedema due to hepatic disease [Unknown]
  - Product use in unapproved indication [Unknown]
  - Cardiac failure congestive [Fatal]
  - Underdose [Unknown]
  - Hepatic function abnormal [Fatal]
